FAERS Safety Report 26082914 (Version 2)
Quarter: 2025Q4

REPORT INFORMATION
  Report Type: Spontaneous
  Country: KR (occurrence: KR)
  Receive Date: 20251124
  Receipt Date: 20251130
  Transmission Date: 20260118
  Serious: Yes (Hospitalization, Other)
  Sender: ABBVIE
  Company Number: KR-ABBVIE-6558202

PATIENT
  Sex: Female

DRUGS (4)
  1. BOTOX [Suspect]
     Active Substance: ONABOTULINUMTOXINA
     Indication: Muscle hypertrophy
     Dosage: TIME INTERVAL: AS NECESSARY: DOSE: 50 UNIT, TOTAL 74 UNIT
     Route: 065
  2. BOTOX [Suspect]
     Active Substance: ONABOTULINUMTOXINA
     Indication: Muscle hypertrophy
     Dosage: TIME INTERVAL: AS NECESSARY: DOSE: 10 UNIT, TOTAL 74 UNIT
     Route: 065
  3. BOTOX [Suspect]
     Active Substance: ONABOTULINUMTOXINA
     Indication: Muscle hypertrophy
     Dosage: TIME INTERVAL: AS NECESSARY: DOSE: 10 UNIT, TOTAL 74 UNIT
     Route: 065
  4. BOTOX [Suspect]
     Active Substance: ONABOTULINUMTOXINA
     Indication: Muscle hypertrophy
     Dosage: TIME INTERVAL: AS NECESSARY: DOSE: 4 UNIT, TOTAL 74 UNIT
     Route: 065

REACTIONS (16)
  - Botulism [Unknown]
  - Cold sweat [Unknown]
  - Pyrexia [Unknown]
  - Asthenopia [Unknown]
  - Palpitations [Unknown]
  - Rash erythematous [Unknown]
  - Necrosis [Unknown]
  - Dizziness [Unknown]
  - Surgery [Unknown]
  - Procedural pain [Not Recovered/Not Resolved]
  - Post procedural swelling [Unknown]
  - Near death experience [Unknown]
  - Sepsis [Unknown]
  - Food poisoning [Unknown]
  - Limb injury [Unknown]
  - Neuralgia [Unknown]

NARRATIVE: CASE EVENT DATE: 20250101
